FAERS Safety Report 8814306 (Version 3)
Quarter: 2013Q2

REPORT INFORMATION
  Report Type: Report from Study
  Country: JP (occurrence: JP)
  Receive Date: 20120928
  Receipt Date: 20130515
  Transmission Date: 20140414
  Serious: Yes (Hospitalization, Other)
  Sender: FDA-Public Use
  Company Number: JP-VERTEX PHARMACEUTICAL INC.-AE-2012-005292

PATIENT
  Age: 64 Year
  Sex: Male

DRUGS (12)
  1. VX-950 (TELAPREVIR) [Suspect]
     Indication: CHRONIC HEPATITIS C
     Dosage: 2250 MG, QD
     Route: 048
     Dates: start: 20120224, end: 20120511
  2. REBETOL [Suspect]
     Indication: CHRONIC HEPATITIS C
     Dosage: 800 MG, QD
     Route: 048
     Dates: start: 20120224, end: 20120412
  3. REBETOL [Suspect]
     Dosage: 600 MG, QD
     Route: 048
     Dates: start: 20120413, end: 20120530
  4. PEGINTRON [Suspect]
     Indication: CHRONIC HEPATITIS C
     Dosage: 1.5 ?G/KG, 1X/WEEK
     Route: 058
     Dates: start: 20120224, end: 20120302
  5. PEGINTRON [Suspect]
     Dosage: 1.2 ?G/KG , 1X/WEEK
     Route: 058
     Dates: start: 20120309, end: 20120525
  6. LOXONIN [Suspect]
     Indication: ADVERSE EVENT
     Dosage: 60 MG/DAY,PRN
     Route: 048
     Dates: start: 20120224, end: 20120224
  7. LOXONIN [Suspect]
     Indication: PROPHYLAXIS
     Dosage: 60 MG/DAY,PRN
     Route: 048
     Dates: start: 20120225, end: 20120322
  8. LOXONIN [Suspect]
     Dosage: 60 MG/DAY, PRN
     Route: 048
     Dates: start: 20120519
  9. MIXED OINTMENT OF MYSER AND SALYCILIC ACID OINTMENT [Concomitant]
     Dosage: QS
     Route: 061
     Dates: start: 20120227, end: 20120530
  10. MUCOSTA [Concomitant]
     Dosage: 100 MG/DAY, PRN
     Route: 048
     Dates: start: 20120309, end: 20120322
  11. MUCOSTA [Concomitant]
     Dosage: 100 MG/DAY, PRN
     Route: 048
     Dates: start: 20120519
  12. GASTER D [Concomitant]
     Dosage: 20 MG/DAY, PRN
     Route: 048
     Dates: start: 20120323

REACTIONS (2)
  - Pancytopenia [Recovered/Resolved]
  - Interstitial lung disease [Recovered/Resolved]
